FAERS Safety Report 7040559-1 (Version None)
Quarter: 2010Q4

REPORT INFORMATION
  Report Type: 
  Country: None (occurrence: None)
  Receive Date: 20101006
  Receipt Date: 20100920
  Transmission Date: 20110411
  Serious: Yes (Other)
  Sender: FDA-Public Use
  Company Number: 2010P1001533

PATIENT
  Age: 25 Month
  Sex: Male
  Weight: 12.7007 kg

DRUGS (1)
  1. CETIRIZINE HCL [Suspect]
     Indication: MULTIPLE ALLERGIES
     Dosage: 1/2 TSP; QD; PO
     Route: 048
     Dates: start: 20100801, end: 20100920

REACTIONS (4)
  - COUGH [None]
  - LIP SWELLING [None]
  - PRURITUS [None]
  - RASH GENERALISED [None]
